FAERS Safety Report 16045608 (Version 2)
Quarter: 2020Q1

REPORT INFORMATION
  Report Type: Spontaneous
  Country: CN (occurrence: CN)
  Receive Date: 20190307
  Receipt Date: 20200214
  Transmission Date: 20200409
  Serious: Yes (Hospitalization)
  Sender: FDA-Public Use
  Company Number: CN-009507513-1903CHN001059

PATIENT
  Age: 91 Year
  Sex: Male
  Weight: 69 kg

DRUGS (1)
  1. TIENAM [Suspect]
     Active Substance: CILASTATIN SODIUM\IMIPENEM
     Indication: PNEUMONIA
     Dosage: 1.0G+NS 100ML
     Route: 041
     Dates: start: 20190212, end: 20190213

REACTIONS (3)
  - Dysphoria [Recovering/Resolving]
  - Disorganised speech [Recovering/Resolving]
  - Violence-related symptom [Recovering/Resolving]

NARRATIVE: CASE EVENT DATE: 20190213
